FAERS Safety Report 8988680 (Version 1)
Quarter: 2012Q4

REPORT INFORMATION
  Report Type: Spontaneous
  Country: US (occurrence: None)
  Receive Date: 20121218
  Receipt Date: 20121218
  Transmission Date: 20130627
  Serious: Yes (Death, Hospitalization)
  Sender: FDA-Public Use
  Company Number: 2012/181

PATIENT
  Age: 78 Year
  Sex: Female

DRUGS (11)
  1. SUMATRIPTAN [Suspect]
     Indication: MIGRAINE
     Route: 048
  2. CYCLOSPORINE [Concomitant]
  3. RISEDRONATE [Concomitant]
  4. PREDNISONE [Concomitant]
  5. DILTIAZEM [Concomitant]
  6. ATENOLOL [Concomitant]
  7. ALLOPURINOL [Concomitant]
  8. METHIMAZOLE [Concomitant]
  9. TEMAZEPAM [Concomitant]
  10. ALPRAZOLAM [Concomitant]
  11. FUROSEMIDE [Concomitant]

REACTIONS (5)
  - Renal infarct [None]
  - Hypotension [None]
  - Aspartate aminotransferase increased [None]
  - Alanine aminotransferase increased [None]
  - Blood lactate dehydrogenase increased [None]
